FAERS Safety Report 21883195 (Version 1)
Quarter: 2023Q1

REPORT INFORMATION
  Report Type: Report from Study
  Country: CA (occurrence: CA)
  Receive Date: 20230119
  Receipt Date: 20230119
  Transmission Date: 20230418
  Serious: Yes (Other)
  Sender: FDA-Public Use
  Company Number: CA-TAKEDA-2023TUS005712

PATIENT
  Age: 45 Year
  Sex: Male

DRUGS (2)
  1. VEDOLIZUMAB [Suspect]
     Active Substance: VEDOLIZUMAB
     Indication: Colitis ulcerative
     Dosage: 300 MILLIGRAM
     Route: 042
     Dates: start: 20220729
  2. DALTEPARIN [Concomitant]
     Active Substance: DALTEPARIN
     Dosage: 2000 INTERNATIONAL UNIT
     Route: 058

REACTIONS (3)
  - Brain neoplasm malignant [Unknown]
  - Feeling abnormal [Unknown]
  - Amnesia [Unknown]
